FAERS Safety Report 5395142-0 (Version None)
Quarter: 2007Q3

REPORT INFORMATION
  Report Type: 
  Country: None (occurrence: None)
  Receive Date: 20070724
  Receipt Date: 20070710
  Transmission Date: 20080115
  Serious: Yes (Death)
  Sender: FDA-Public Use
  Company Number: BE-NOVOPROD-265118

PATIENT
  Age: 60 Year
  Sex: Female

DRUGS (9)
  1. NOVONORM [Suspect]
     Indication: INSULIN-REQUIRING TYPE II DIABETES MELLITUS
     Dosage: 3 X 4 MG, UNK
     Route: 048
     Dates: start: 20070618
  2. NOVONORM [Suspect]
     Dosage: 3 X 2 MG, UNK
     Route: 048
  3. GLUCOPHAGE [Suspect]
     Indication: INSULIN-REQUIRING TYPE II DIABETES MELLITUS
     Dosage: 3 X 850 MG, QD
     Route: 048
     Dates: start: 20070602
  4. BROMAZEPAM [Concomitant]
  5. TRAFLOXAL [Concomitant]
     Indication: HERPES VIRUS INFECTION
     Dates: start: 20070602
  6. GANCICLOVIR [Concomitant]
     Indication: HERPES VIRUS INFECTION
     Dates: start: 20070602
  7. CARDIOASPIRINE [Concomitant]
     Dosage: 100 MG, QD
     Route: 048
     Dates: start: 20070602
  8. ZOCOR [Concomitant]
     Dosage: 40 MG, QD
     Route: 048
     Dates: start: 20070602
  9. RAMIPRIL [Concomitant]
     Indication: HYPERTENSION
     Dosage: 5 MG, QD
     Route: 048
     Dates: start: 20070602

REACTIONS (1)
  - DEATH [None]
